FAERS Safety Report 7770987-8 (Version None)
Quarter: 2011Q3

REPORT INFORMATION
  Report Type: 
  Country: None (occurrence: None)
  Receive Date: 20110922
  Receipt Date: 20110414
  Transmission Date: 20111222
  Serious: Yes (Hospitalization)
  Sender: FDA-Public Use
  Company Number: US-ASTRAZENECA-2009UW02185

PATIENT
  Age: 55 Year
  Sex: Female
  Weight: 70.3 kg

DRUGS (8)
  1. SEROQUEL [Suspect]
     Route: 048
     Dates: start: 20080801, end: 20090118
  2. SEROQUEL [Suspect]
     Route: 048
     Dates: start: 20080801, end: 20090118
  3. XANAX [Concomitant]
     Indication: CONVULSION
  4. SEROQUEL [Suspect]
     Indication: INSOMNIA
     Route: 048
     Dates: start: 20060801
  5. SEROQUEL [Suspect]
     Route: 048
     Dates: start: 20080801, end: 20090118
  6. SEROQUEL [Suspect]
     Indication: SCHIZOPHRENIA
     Route: 048
     Dates: start: 20060801
  7. TEGRETOL [Concomitant]
     Indication: PANIC DISORDER
  8. SEROQUEL [Suspect]
     Indication: POST-TRAUMATIC STRESS DISORDER
     Route: 048
     Dates: start: 20060801

REACTIONS (9)
  - DRUG INEFFECTIVE [None]
  - OFF LABEL USE [None]
  - PSYCHOTIC DISORDER [None]
  - INSOMNIA [None]
  - DRUG DOSE OMISSION [None]
  - STRESS [None]
  - NO ADVERSE EVENT [None]
  - THERAPEUTIC RESPONSE UNEXPECTED [None]
  - SLEEP DISORDER [None]
